FAERS Safety Report 5415301-8 (Version None)
Quarter: 2007Q3

REPORT INFORMATION
  Report Type: 
  Country: None (occurrence: None)
  Receive Date: 20070815
  Receipt Date: 20070803
  Transmission Date: 20080115
  Serious: Yes (Hospitalization)
  Sender: FDA-Public Use
  Company Number: JP-ASTRAZENECA-2007AP04383

PATIENT
  Age: 63 Year
  Sex: Male
  Weight: 65 kg

DRUGS (4)
  1. MEROPEN [Suspect]
     Indication: PNEUMONIA
     Route: 041
     Dates: start: 20070605, end: 20070612
  2. MEROPEN [Suspect]
     Indication: PYOTHORAX
     Route: 041
     Dates: start: 20070605, end: 20070612
  3. TARGOCID [Suspect]
     Indication: PNEUMONIA STAPHYLOCOCCAL
     Route: 041
     Dates: start: 20070609, end: 20070609
  4. TARGOCID [Suspect]
     Route: 041
     Dates: start: 20070610, end: 20070610

REACTIONS (1)
  - DERMATITIS EXFOLIATIVE [None]
